FAERS Safety Report 23209139 (Version 1)
Quarter: 2023Q4

REPORT INFORMATION
  Report Type: Spontaneous
  Country: GB (occurrence: GB)
  Receive Date: 20231121
  Receipt Date: 20231121
  Transmission Date: 20240110
  Serious: Yes (Other)
  Sender: FDA-Public Use
  Company Number: GB-JNJFOC-20231136582

PATIENT

DRUGS (1)
  1. SUDAFED [Suspect]
     Active Substance: PSEUDOEPHEDRINE HYDROCHLORIDE
     Indication: Nasal obstruction
     Dosage: ONE SPRAY IN EACH NOSTRIL TWICE A DAY STILL USE IT TO THIS PRESENT DAY
     Route: 065
     Dates: start: 20100101

REACTIONS (1)
  - Drug dependence [Unknown]
